FAERS Safety Report 9685386 (Version 1)
Quarter: 2013Q4

REPORT INFORMATION
  Report Type: Spontaneous
  Country: US (occurrence: US)
  Receive Date: 20131113
  Receipt Date: 20131113
  Transmission Date: 20140711
  Serious: Yes (Other)
  Sender: FDA-Public Use
  Company Number: PHEH2013US023647

PATIENT
  Sex: Female

DRUGS (6)
  1. DIOVAN [Suspect]
     Dosage: 80 MG, QID
  2. ALENDRONATE SODIUM [Concomitant]
     Indication: OSTEOPOROSIS
     Dosage: 35 MG, QW
  3. HYDROXYCHLOROQUINE [Concomitant]
     Indication: ARTHRITIS
     Dosage: 200 MG, BID
  4. MYRBETRIQ [Concomitant]
     Indication: HYPERTONIC BLADDER
     Dosage: 25 MG, QOD
  5. PREMARIN [Concomitant]
     Dosage: 0.5 G, QMWF
  6. RITUXAN [Concomitant]
     Indication: RHEUMATOID ARTHRITIS
     Dosage: UNK UKN, UNK

REACTIONS (1)
  - Myelodysplastic syndrome [Recovering/Resolving]
